FAERS Safety Report 7650902-8 (Version None)
Quarter: 2011Q3

REPORT INFORMATION
  Report Type: 
  Country: None (occurrence: None)
  Receive Date: 20110727
  Receipt Date: 20110711
  Transmission Date: 20111222
  Serious: Yes (Life-Threatening)
  Sender: FDA-Public Use
  Company Number: TCI2011A03886

PATIENT
  Age: 68 Year
  Sex: Male

DRUGS (31)
  1. AMLODIPINE [Concomitant]
  2. VOGLIBOSE [Concomitant]
  3. NORVASC [Concomitant]
  4. VOGLIBOSE OD (VOGLIBOSE) [Concomitant]
  5. AUGMENTIN '125' [Concomitant]
  6. ASPIRIN [Concomitant]
  7. FAMOSTAGINE D (FAMOTIDINE) [Concomitant]
  8. METFORMIN HYDROCHLORIDE [Concomitant]
  9. LAC B (LACTOBACILLUS BIFIDUS, LYOPHILIZED) [Concomitant]
  10. BROCIN-CODEINE (CODEINE PHOSPHATE, PRUNUS SEROTINA BARK) [Concomitant]
  11. PELEX (CAFFEINE, SALICYLAMIDE, PARACETAMOL, CHLORPHENAMINE MALEATE) [Concomitant]
  12. SUMILU STICK (FELBINAC) [Concomitant]
  13. GLACTIV (SITAGLIPTIN PHOSPHATE) [Concomitant]
  14. EUGLUCON (GLBIENCLAMIDE) [Concomitant]
  15. LOSARTAN POTASSIUM [Concomitant]
  16. ASVERIN (TIPEPIDINE HIBENZATE) [Concomitant]
  17. NICOTINELL TTS30 (NICOTINE) [Concomitant]
  18. OLMESARTAN MEDOXOMIL [Concomitant]
  19. ATELEC (CILNIDIPINE) [Concomitant]
  20. ACETAMINOPHEN [Concomitant]
  21. METGLUCO (METFORMIN HYDROCHLORIDE) [Concomitant]
  22. NITROPEN (GLYCERYL TRINITRATE) [Concomitant]
  23. ACTOS [Suspect]
     Indication: DIABETES MELLITUS
     Dosage: 15 MG (15 MG,1 IN 1 D) PER ORAL ; 30 MG (30 MG,1 IN 1 D) PER ORAL
     Route: 048
     Dates: start: 20090110, end: 20090424
  24. ACTOS [Suspect]
     Indication: DIABETES MELLITUS
     Dosage: 15 MG (15 MG,1 IN 1 D) PER ORAL ; 30 MG (30 MG,1 IN 1 D) PER ORAL
     Route: 048
     Dates: start: 20090425, end: 20110625
  25. DASEN (SERRAPEPTASE) [Concomitant]
  26. AMARYL [Concomitant]
  27. LEVOFLOXACIN [Concomitant]
  28. FAMOTIDINE D (FAMOTIDINE) [Concomitant]
  29. DIOVAN [Concomitant]
  30. FLOMOX (CEFCAPENE PIVOXIL HYDROCHLORIDE) [Concomitant]
  31. POLARAMINE [Concomitant]

REACTIONS (2)
  - BLADDER CANCER [None]
  - ABDOMINAL DISCOMFORT [None]
